FAERS Safety Report 12837258 (Version 1)
Quarter: 2016Q4

REPORT INFORMATION
  Report Type: Report from Study
  Country: BR (occurrence: BR)
  Receive Date: 20161011
  Receipt Date: 20161011
  Transmission Date: 20170207
  Serious: Yes (Hospitalization, Other)
  Sender: FDA-Public Use
  Company Number: BR-B.I. PHARMACEUTICALS,INC./RIDGEFIELD-2015-BI-70932BI

PATIENT
  Age: 52 Year
  Sex: Male
  Weight: 95 kg

DRUGS (10)
  1. BLINDED LINAGLIPTIN [Suspect]
     Active Substance: LINAGLIPTIN
     Indication: TYPE 2 DIABETES MELLITUS
     Route: 048
     Dates: start: 20150924
  2. RANITIDINE. [Concomitant]
     Active Substance: RANITIDINE
     Indication: PROPHYLAXIS
     Dosage: STRENGTH: 150MG
     Route: 048
     Dates: start: 201409
  3. ROSUVASTATINA [Concomitant]
     Active Substance: ROSUVASTATIN
     Indication: CORONARY ARTERY DISEASE
     Route: 048
     Dates: start: 201409
  4. METOPROLOL TARTARATO [Concomitant]
     Indication: CORONARY ARTERY DISEASE
     Dosage: STRENGTH: 100MG
     Route: 048
     Dates: start: 201409
  5. FROSOMIDA [Concomitant]
     Indication: CARDIAC FAILURE CHRONIC
     Dosage: STRENGTH: 40MG
     Route: 048
     Dates: start: 20140916
  6. HIDRALAZINA [Concomitant]
     Indication: HYPERTENSION
     Route: 048
     Dates: start: 201409
  7. NPH INSULIN [Concomitant]
     Active Substance: INSULIN BEEF
     Indication: DIABETES MELLITUS
     Route: 058
     Dates: start: 2014
  8. AAS [Concomitant]
     Active Substance: ASPIRIN
     Indication: CORONARY ARTERY DISEASE
     Route: 048
     Dates: start: 201409
  9. METOPROLOL TARTARATO [Concomitant]
     Indication: CARDIAC FAILURE CHRONIC
  10. CLOPIDOGREL [Concomitant]
     Active Substance: CLOPIDOGREL BISULFATE
     Indication: CORONARY ARTERY DISEASE
     Route: 048
     Dates: start: 201409

REACTIONS (3)
  - Cardiac failure congestive [Recovered/Resolved]
  - Urinary tract infection [Recovered/Resolved]
  - Renal failure [Recovered/Resolved]

NARRATIVE: CASE EVENT DATE: 20151114
